FAERS Safety Report 17396158 (Version 2)
Quarter: 2020Q1

REPORT INFORMATION
  Report Type: Spontaneous
  Country: US (occurrence: US)
  Receive Date: 20200210
  Receipt Date: 20200225
  Transmission Date: 20200409
  Serious: Yes (Other)
  Sender: FDA-Public Use
  Company Number: US-BAYER-2020-023174

PATIENT
  Age: 20 Year
  Sex: Female
  Weight: 57.6 kg

DRUGS (3)
  1. PROBIOTICS NOS [Concomitant]
     Active Substance: PROBIOTICS NOS
  2. AZELASTINE. [Concomitant]
     Active Substance: AZELASTINE HYDROCHLORIDE
  3. KYLEENA [Suspect]
     Active Substance: LEVONORGESTREL
     Indication: CONTRACEPTION
     Dosage: 17.5 ?G PER DAY, CONTNUOUSLY
     Route: 015
     Dates: start: 20200108, end: 20200213

REACTIONS (1)
  - Embedded device [None]

NARRATIVE: CASE EVENT DATE: 20200207
